FAERS Safety Report 5217768-7 (Version None)
Quarter: 2007Q1

REPORT INFORMATION
  Report Type: 
  Country: None (occurrence: None)
  Receive Date: 20061130
  Receipt Date: 20061003
  Transmission Date: 20070707
  Serious: Yes (Hospitalization, Other)
  Sender: FDA-Public Use
  Company Number: US200608005295

PATIENT
  Age: 28 Year
  Sex: Male
  Weight: 93 kg

DRUGS (2)
  1. ZYPREXA [Suspect]
     Indication: DEPRESSION
     Dosage: 5 MG, 7.5 MG, 10 MG,
     Dates: end: 20020501
  2. ZYPREXA [Suspect]
     Indication: DEPRESSION
     Dosage: 5 MG, 7.5 MG, 10 MG,
     Dates: start: 20020801, end: 20021001

REACTIONS (3)
  - DIABETES MELLITUS [None]
  - METABOLIC DISORDER [None]
  - PANCREATITIS [None]
